FAERS Safety Report 17288454 (Version 34)
Quarter: 2025Q1

REPORT INFORMATION
  Report Type: Report from Study
  Country: US (occurrence: US)
  Receive Date: 20200120
  Receipt Date: 20250325
  Transmission Date: 20250409
  Serious: Yes (Hospitalization, Other)
  Sender: TAKEDA
  Company Number: US-SHIRE-US202001731

PATIENT
  Age: 64 Year
  Sex: Female
  Weight: 66 kg

DRUGS (62)
  1. .ALPHA.1-PROTEINASE INHIBITOR HUMAN [Suspect]
     Active Substance: .ALPHA.1-PROTEINASE INHIBITOR HUMAN
     Indication: Alpha-1 antitrypsin deficiency
     Dosage: UNK UNK, 1/WEEK
     Dates: start: 20070402
  2. .ALPHA.1-PROTEINASE INHIBITOR HUMAN [Suspect]
     Active Substance: .ALPHA.1-PROTEINASE INHIBITOR HUMAN
     Indication: Emphysema
     Dosage: UNK UNK, 1/WEEK
  3. .ALPHA.1-PROTEINASE INHIBITOR HUMAN [Suspect]
     Active Substance: .ALPHA.1-PROTEINASE INHIBITOR HUMAN
     Dosage: UNK UNK, 1/WEEK
  4. .ALPHA.1-PROTEINASE INHIBITOR HUMAN [Suspect]
     Active Substance: .ALPHA.1-PROTEINASE INHIBITOR HUMAN
     Dosage: 4260 MILLIGRAM, 1/WEEK
     Dates: start: 20081014
  5. .ALPHA.1-PROTEINASE INHIBITOR HUMAN [Suspect]
     Active Substance: .ALPHA.1-PROTEINASE INHIBITOR HUMAN
     Dosage: 4308 MILLIGRAM, 1/WEEK
  6. .ALPHA.1-PROTEINASE INHIBITOR HUMAN [Suspect]
     Active Substance: .ALPHA.1-PROTEINASE INHIBITOR HUMAN
     Dosage: 60 MILLIGRAM/KILOGRAM, 1/WEEK
  7. LEVOFLOXACIN [Suspect]
     Active Substance: LEVOFLOXACIN
     Indication: Product used for unknown indication
  8. EPINEPHRINE [Concomitant]
     Active Substance: EPINEPHRINE
  9. LIPITOR [Concomitant]
     Active Substance: ATORVASTATIN CALCIUM
  10. ALENDRONATE SODIUM [Concomitant]
     Active Substance: ALENDRONATE SODIUM
  11. FLUBLOK QUADRIVALENT NOS [Concomitant]
     Active Substance: INFLUENZA VIRUS VACCINE
  12. SPIRIVA [Concomitant]
     Active Substance: TIOTROPIUM BROMIDE MONOHYDRATE
  13. ONDANSETRON HYDROCHLORIDE [Concomitant]
     Active Substance: ONDANSETRON HYDROCHLORIDE
  14. KLOR-CON [Concomitant]
     Active Substance: POTASSIUM CHLORIDE
  15. ROFLUMILAST [Concomitant]
     Active Substance: ROFLUMILAST
  16. SINGULAIR [Concomitant]
     Active Substance: MONTELUKAST SODIUM
  17. NYSTATIN [Concomitant]
     Active Substance: NYSTATIN
  18. HEPARIN [Concomitant]
     Active Substance: HEPARIN SODIUM
  19. SODIUM CHLORIDE [Concomitant]
     Active Substance: SODIUM CHLORIDE
  20. LISINOPRIL [Concomitant]
     Active Substance: LISINOPRIL
  21. ALBUTEROL SULFATE [Concomitant]
     Active Substance: ALBUTEROL SULFATE
  22. DOXYCYCLINE HYCLATE [Concomitant]
     Active Substance: DOXYCYCLINE HYCLATE
  23. OXYCODONE AND ACETAMINOPHEN [Concomitant]
     Active Substance: ACETAMINOPHEN\OXYCODONE HYDROCHLORIDE
  24. NAC [Concomitant]
  25. MIRALAX [Concomitant]
     Active Substance: POLYETHYLENE GLYCOL 3350
  26. NITROGLYCERIN [Concomitant]
     Active Substance: NITROGLYCERIN
  27. LIDOCAINE\PRILOCAINE [Concomitant]
     Active Substance: LIDOCAINE\PRILOCAINE
  28. OXYGEN [Concomitant]
     Active Substance: OXYGEN
  29. TESSALON [Concomitant]
     Active Substance: BENZONATATE
  30. DEXTROSE [Concomitant]
     Active Substance: DEXTROSE MONOHYDRATE
  31. DIPHENHYDRAMINE [Concomitant]
     Active Substance: DIPHENHYDRAMINE
  32. DIPHENHYDRAMINE HYDROCHLORIDE [Concomitant]
     Active Substance: DIPHENHYDRAMINE HYDROCHLORIDE
  33. ADVAIR HFA [Concomitant]
     Active Substance: FLUTICASONE PROPIONATE\SALMETEROL XINAFOATE
  34. GABAPENTIN [Concomitant]
     Active Substance: GABAPENTIN
  35. ALBUTEROL [Concomitant]
     Active Substance: ALBUTEROL
  36. FUROSEMIDE [Concomitant]
     Active Substance: FUROSEMIDE
  37. ONDANSETRON [Concomitant]
     Active Substance: ONDANSETRON
  38. SYNTHROID [Concomitant]
     Active Substance: LEVOTHYROXINE SODIUM
  39. LEXAPRO [Concomitant]
     Active Substance: ESCITALOPRAM OXALATE
  40. GUAIFENESIN [Concomitant]
     Active Substance: GUAIFENESIN
  41. PLAVIX [Concomitant]
     Active Substance: CLOPIDOGREL BISULFATE
  42. MECLIZINE HYDROCHLORIDE [Concomitant]
     Active Substance: MECLIZINE HYDROCHLORIDE
  43. MELATONIN [Concomitant]
     Active Substance: MELATONIN
  44. POTASSIUM CHLORIDE [Concomitant]
     Active Substance: POTASSIUM CHLORIDE
  45. OCEAN SALINE NASAL SPRAY [Concomitant]
     Active Substance: SODIUM CHLORIDE
  46. ACIDOPHILUS [Concomitant]
     Active Substance: LACTOBACILLUS ACIDOPHILUS
  47. PROCHLORPERAZINE [Concomitant]
     Active Substance: PROCHLORPERAZINE
  48. ROBAXIN [Concomitant]
     Active Substance: METHOCARBAMOL
  49. ASPIRIN [Concomitant]
     Active Substance: ASPIRIN
  50. XANAX [Concomitant]
     Active Substance: ALPRAZOLAM
  51. ACETAMINOPHEN [Concomitant]
     Active Substance: ACETAMINOPHEN
  52. FLONASE [Concomitant]
     Active Substance: FLUTICASONE PROPIONATE
  53. MUCINEX [Concomitant]
     Active Substance: GUAIFENESIN
  54. HYDROCORTISONE [Concomitant]
     Active Substance: HYDROCORTISONE
  55. PRILOSEC [Concomitant]
     Active Substance: OMEPRAZOLE MAGNESIUM
  56. ACETYLCYSTEINE [Concomitant]
     Active Substance: ACETYLCYSTEINE
  57. CETIRIZINE [Concomitant]
     Active Substance: CETIRIZINE HYDROCHLORIDE
  58. HERBALS\TURMERIC [Concomitant]
     Active Substance: HERBALS\TURMERIC
  59. PREDNISONE [Concomitant]
     Active Substance: PREDNISONE
  60. ETHAMBUTOL HYDROCHLORIDE [Concomitant]
     Active Substance: ETHAMBUTOL HYDROCHLORIDE
  61. AZITHROMYCIN [Concomitant]
     Active Substance: AZITHROMYCIN
  62. RIFAMPIN [Concomitant]
     Active Substance: RIFAMPIN

REACTIONS (36)
  - Respiratory tract infection [Unknown]
  - Dyspnoea [Unknown]
  - Lip pain [Unknown]
  - Candida infection [Unknown]
  - Chromaturia [Unknown]
  - Wheezing [Unknown]
  - Infection [Unknown]
  - Multiple allergies [Unknown]
  - Productive cough [Unknown]
  - Paranasal sinus hypersecretion [Unknown]
  - Ear infection [Unknown]
  - Vertigo [Unknown]
  - Fall [Unknown]
  - Stomatitis [Unknown]
  - Arthropod sting [Unknown]
  - Sinus congestion [Unknown]
  - COVID-19 [Unknown]
  - Decreased appetite [Unknown]
  - Weight decreased [Unknown]
  - Sinus headache [Unknown]
  - Pain [Unknown]
  - Skin abrasion [Unknown]
  - Paranasal sinus discomfort [Recovering/Resolving]
  - Seasonal allergy [Unknown]
  - Inappropriate schedule of product administration [Unknown]
  - Insurance issue [Unknown]
  - Product use issue [Unknown]
  - Sinusitis [Recovered/Resolved]
  - Chest pain [Unknown]
  - Diarrhoea [Unknown]
  - Lung disorder [Not Recovered/Not Resolved]
  - Malaise [Unknown]
  - Urticaria [Unknown]
  - Bronchitis [Unknown]
  - Cough [Unknown]
  - Headache [Recovering/Resolving]

NARRATIVE: CASE EVENT DATE: 20220911
